FAERS Safety Report 16196751 (Version 1)
Quarter: 2019Q2

REPORT INFORMATION
  Report Type: Spontaneous
  Country: CA (occurrence: CA)
  Receive Date: 20190405
  Receipt Date: 20190405
  Transmission Date: 20190711
  Serious: Yes (Other)
  Sender: FDA-Public Use
  Company Number: CA-STERINOVA INC.-HPR-19-006

PATIENT
  Age: 89 Year
  Sex: Female

DRUGS (8)
  1. HYDROMORPHONE [Concomitant]
     Active Substance: HYDROMORPHONE
  2. RIVAROXABAN [Suspect]
     Active Substance: RIVAROXABAN
     Indication: CEREBROVASCULAR ACCIDENT PROPHYLAXIS
     Dosage: 15 MG EVERY DAY
  3. EPINEPHRINE. [Concomitant]
     Active Substance: EPINEPHRINE
  4. LIDOCAINE. [Concomitant]
     Active Substance: LIDOCAINE
  5. BUPIVACAINE. [Concomitant]
     Active Substance: BUPIVACAINE
  6. RIVAROXABAN [Suspect]
     Active Substance: RIVAROXABAN
     Indication: ATRIAL FIBRILLATION
  7. HEPARIN SODIUM. [Suspect]
     Active Substance: HEPARIN SODIUM
     Indication: THROMBOSIS PROPHYLAXIS
     Dosage: EVERY 12 HOURS
     Route: 058
  8. ESCITALOPRAM [Suspect]
     Active Substance: ESCITALOPRAM OXALATE
     Indication: PRODUCT USED FOR UNKNOWN INDICATION
     Dosage: UNK

REACTIONS (9)
  - Extradural haematoma [Unknown]
  - Hypovolaemia [Unknown]
  - Haemorrhage [Unknown]
  - Oedema [Unknown]
  - Spinal cord compression [Unknown]
  - Hypotension [Unknown]
  - Platelet aggregation inhibition [Unknown]
  - Paralysis [Unknown]
  - Platelet count decreased [Unknown]
